FAERS Safety Report 6366203-4 (Version None)
Quarter: 2009Q3

REPORT INFORMATION
  Report Type: 
  Country: None (occurrence: None)
  Receive Date: 20090915
  Receipt Date: 20090901
  Transmission Date: 20100115
  Serious: Yes (Hospitalization)
  Sender: FDA-Public Use
  Company Number: 1000008751

PATIENT
  Age: 54 Year
  Sex: Male
  Weight: 100 kg

DRUGS (5)
  1. CITALOPRAM HYDROBROMIDE [Suspect]
     Dosage: 1 DOSAGE FORMS (1 DOSAGE FORMS, 1 IN 1 D), ORAL
     Route: 048
     Dates: start: 20090801, end: 20090817
  2. INEXIUM (TABLETS) [Suspect]
     Indication: GASTRIC ULCER
     Dosage: 40 MG (40 MG, 1 IN 1 D), ORAL
     Route: 048
     Dates: start: 20090802, end: 20090819
  3. BUMEX [Suspect]
     Dates: start: 20090730, end: 20090817
  4. TRANDATE [Suspect]
     Dosage: ORAL
     Route: 048
     Dates: start: 20090728, end: 20090814
  5. CORTANCYL [Concomitant]

REACTIONS (4)
  - BONE MARROW FAILURE [None]
  - LYMPHOPENIA [None]
  - RETICULOCYTE COUNT DECREASED [None]
  - THROMBOCYTOPENIA [None]
